FAERS Safety Report 17093607 (Version 2)
Quarter: 2019Q4

REPORT INFORMATION
  Report Type: Report from Study
  Country: None (occurrence: CO)
  Receive Date: 20191129
  Receipt Date: 20191205
  Transmission Date: 20200122
  Serious: Yes (Hospitalization, Other)
  Sender: FDA-Public Use
  Company Number: CO-ABBVIE-19K-036-3167092-00

PATIENT
  Age: 67 Year
  Sex: Male
  Weight: 64 kg

DRUGS (2)
  1. IMBRUVICA [Suspect]
     Active Substance: IBRUTINIB
     Indication: MANTLE CELL LYMPHOMA
     Route: 048
     Dates: start: 20190726, end: 20191031
  2. RITUXIMAB. [Suspect]
     Active Substance: RITUXIMAB
     Indication: MANTLE CELL LYMPHOMA
     Route: 065

REACTIONS (16)
  - Weight decreased [Unknown]
  - Testicular pain [Not Recovered/Not Resolved]
  - Thrombosis [Not Recovered/Not Resolved]
  - Urinary tract infection [Not Recovered/Not Resolved]
  - Vomiting [Recovering/Resolving]
  - Inflammation [Not Recovered/Not Resolved]
  - Orchitis noninfective [Not Recovered/Not Resolved]
  - Post procedural infection [Not Recovered/Not Resolved]
  - Inflammation [Not Recovered/Not Resolved]
  - Psychiatric symptom [Not Recovered/Not Resolved]
  - Off label use [Unknown]
  - Inflammation [Not Recovered/Not Resolved]
  - Cough [Not Recovered/Not Resolved]
  - Skin laceration [Not Recovered/Not Resolved]
  - Diarrhoea [Recovering/Resolving]
  - Incorrect dose administered [Unknown]

NARRATIVE: CASE EVENT DATE: 201907
